FAERS Safety Report 13545816 (Version 1)
Quarter: 2017Q2

REPORT INFORMATION
  Report Type: Spontaneous
  Country: US (occurrence: US)
  Receive Date: 20170515
  Receipt Date: 20170515
  Transmission Date: 20170830
  Serious: No
  Sender: FDA-Public Use
  Company Number: US-WARNER CHILCOTT-CIP09003329

PATIENT
  Age: 48 Year
  Sex: Female
  Weight: 48.98 kg

DRUGS (9)
  1. VITAMINS NOS [Concomitant]
     Active Substance: VITAMINS
  2. GLUCOSAMINE/CHONDROITIN            /01625901/ [Concomitant]
  3. ALEVE [Concomitant]
     Active Substance: NAPROXEN SODIUM
     Route: 065
  4. IBUPROFEN                          /00109205/ [Concomitant]
     Active Substance: IBUPROFEN
     Route: 065
  5. DICLOFENAC                         /00372302/ [Concomitant]
     Active Substance: DICLOFENAC
     Route: 065
  6. ACTONEL [Suspect]
     Active Substance: RISEDRONATE SODIUM
     Indication: OSTEOPOROSIS
  7. ACTONEL [Suspect]
     Active Substance: RISEDRONATE SODIUM
     Indication: OSTEOPENIA
     Dosage: 35 MG ONCE WEEKLY
     Route: 048
     Dates: start: 2007, end: 2012
  8. CALCIUM [Concomitant]
     Active Substance: CALCIUM
  9. VITAMIN D [Concomitant]
     Active Substance: CHOLECALCIFEROL

REACTIONS (7)
  - Arthralgia [Recovered/Resolved]
  - Lymphadenopathy [Recovered/Resolved]
  - Hot flush [Recovered/Resolved]
  - Skin burning sensation [Recovered/Resolved]
  - Choking [Recovered/Resolved]
  - Bone pain [Recovered/Resolved]
  - Dysphagia [Recovered/Resolved]
